FAERS Safety Report 5454305-6 (Version None)
Quarter: 2007Q3

REPORT INFORMATION
  Report Type: 
  Country: None (occurrence: None)
  Receive Date: 20070917
  Receipt Date: 20060829
  Transmission Date: 20080115
  Serious: No
  Sender: FDA-Public Use
  Company Number: US-ASTRAZENECA-2006UW15241

PATIENT
  Age: 56 Year
  Sex: Female
  Weight: 49.4 kg

DRUGS (9)
  1. SEROQUEL [Suspect]
     Indication: PARANOIA
     Route: 048
  2. SEROQUEL [Suspect]
     Route: 048
  3. SEROQUEL [Suspect]
     Route: 048
  4. EFFEXOR [Concomitant]
     Indication: DEPRESSION
     Route: 048
  5. EFFEXOR [Concomitant]
     Indication: OBSESSIVE-COMPULSIVE DISORDER
     Route: 048
  6. LEVOTHYROXINE SODIUM [Concomitant]
  7. KLONOPIN [Concomitant]
  8. LIPITOR [Concomitant]
  9. ACTONEL [Concomitant]

REACTIONS (5)
  - ANXIETY [None]
  - FEAR [None]
  - PALPITATIONS [None]
  - PANIC ATTACK [None]
  - SLEEP DISORDER [None]
